FAERS Safety Report 18289182 (Version 15)
Quarter: 2023Q4

REPORT INFORMATION
  Report Type: Spontaneous
  Country: US (occurrence: US)
  Receive Date: 20200921
  Receipt Date: 20231027
  Transmission Date: 20240109
  Serious: Yes (Other)
  Sender: FDA-Public Use
  Company Number: US-PFIZER INC-2020363547

PATIENT
  Age: 58 Year
  Sex: Female
  Weight: 79.4 kg

DRUGS (10)
  1. IBRANCE [Suspect]
     Active Substance: PALBOCICLIB
     Indication: Breast cancer female
     Dosage: 100 MG, CYCLIC (1 TABLET BY MOUTH DAILY FOR 21 DAYS THEN 7 DAYS OFF)
     Route: 048
     Dates: start: 20191015
  2. IBRANCE [Suspect]
     Active Substance: PALBOCICLIB
     Indication: Metastases to liver
     Dosage: 125 MG, CYCLIC, DAILY X 21 DAYS Q X 28 DAYS
     Route: 048
     Dates: start: 20200114
  3. IBRANCE [Suspect]
     Active Substance: PALBOCICLIB
     Dosage: 125 MG
     Dates: start: 20200618
  4. IBRANCE [Suspect]
     Active Substance: PALBOCICLIB
     Dosage: 125 MG, CYCLIC (3X7)
  5. IBRANCE [Suspect]
     Active Substance: PALBOCICLIB
     Dosage: 125 MG, DAILY
     Route: 048
     Dates: start: 20220301
  6. IBRANCE [Suspect]
     Active Substance: PALBOCICLIB
     Dosage: 100 MG, CYCLIC (1 TABLET BY MOUTH DAILY, DAILY FOR 21 DAYS THEN 7 DAYS OFF)
     Route: 048
     Dates: start: 20220428
  7. IBRANCE [Suspect]
     Active Substance: PALBOCICLIB
     Dosage: 100 MG
     Dates: start: 2023
  8. EXEMESTANE [Concomitant]
     Active Substance: EXEMESTANE
     Dosage: 25 MG, 1X/DAY
     Route: 048
     Dates: start: 20220425
  9. CYMBALTA [Concomitant]
     Active Substance: DULOXETINE HYDROCHLORIDE
     Dosage: UNK
  10. LETROZOLE [Concomitant]
     Active Substance: LETROZOLE
     Indication: Breast cancer female
     Dosage: UNK
     Dates: start: 20190503

REACTIONS (23)
  - Eye operation [Unknown]
  - Lower limb fracture [Unknown]
  - Cataract [Unknown]
  - Osteonecrosis [Unknown]
  - Constipation [Unknown]
  - Dyspnoea [Unknown]
  - Myalgia [Not Recovered/Not Resolved]
  - Pain [Recovering/Resolving]
  - Arthralgia [Unknown]
  - Hyperhidrosis [Not Recovered/Not Resolved]
  - Insomnia [Unknown]
  - Gait disturbance [Unknown]
  - Muscle injury [Unknown]
  - Visual impairment [Unknown]
  - Memory impairment [Unknown]
  - Dry skin [Unknown]
  - Fatigue [Not Recovered/Not Resolved]
  - Asthenia [Unknown]
  - Nausea [Unknown]
  - Vomiting [Unknown]
  - Hot flush [Unknown]
  - Product prescribing issue [Unknown]
  - Illness [Unknown]

NARRATIVE: CASE EVENT DATE: 20220623
